FAERS Safety Report 8430655-6 (Version None)
Quarter: 2012Q2

REPORT INFORMATION
  Report Type: 
  Country: None (occurrence: None)
  Receive Date: 20120612
  Receipt Date: 20120530
  Transmission Date: 20120825
  Serious: No
  Sender: FDA-Public Use
  Company Number: US-ASTRAZENECA-2012SE36504

PATIENT
  Age: 68 Year
  Sex: Female
  Weight: 77.1 kg

DRUGS (4)
  1. BISOPROLOL FUMARATE AND HYDROCHLOROTHIAZIDE [Concomitant]
  2. NEXIUM [Suspect]
     Indication: ABDOMINAL DISCOMFORT
     Dosage: EVERY DAY
     Route: 048
  3. ASPIRIN [Concomitant]
  4. CIPROFLOXACIN [Concomitant]
     Indication: KIDNEY INFECTION

REACTIONS (7)
  - MUSCLE SPASMS [None]
  - KIDNEY INFECTION [None]
  - HEAD DISCOMFORT [None]
  - DYSPEPSIA [None]
  - PYREXIA [None]
  - GASTROOESOPHAGEAL REFLUX DISEASE [None]
  - OFF LABEL USE [None]
